FAERS Safety Report 6407490-3 (Version None)
Quarter: 2009Q4

REPORT INFORMATION
  Report Type: 
  Country: None (occurrence: None)
  Receive Date: 20091020
  Receipt Date: 20091012
  Transmission Date: 20100525
  Serious: Yes (Hospitalization, Other)
  Sender: FDA-Public Use
  Company Number: FR-ROXANE LABORATORIES, INC.-2009-RO-01058RO

PATIENT
  Age: 43 Year
  Sex: Male

DRUGS (9)
  1. LITHIUM CARBONATE [Suspect]
     Route: 048
  2. GLUCOSE SALINE SOLUTION [Concomitant]
     Indication: FLUID REPLACEMENT
     Route: 042
  3. GLUCOSE SALINE SOLUTION [Concomitant]
     Indication: DRUG TOXICITY
  4. SALINE [Concomitant]
     Indication: FLUID REPLACEMENT
     Route: 042
  5. SALINE [Concomitant]
     Indication: DRUG TOXICITY
  6. CYAMEMAZINE [Concomitant]
     Indication: SEDATION
  7. CYAMEMAZINE [Concomitant]
     Indication: DRUG TOXICITY
  8. CLORAZEPATE DIPOTASSIUM [Concomitant]
     Indication: SEDATION
  9. CLORAZEPATE DIPOTASSIUM [Concomitant]
     Indication: DRUG TOXICITY

REACTIONS (17)
  - AFFECT LABILITY [None]
  - AGITATION [None]
  - BRADYCARDIA [None]
  - CONFUSIONAL STATE [None]
  - DEHYDRATION [None]
  - DRUG TOXICITY [None]
  - ELECTROCARDIOGRAM P WAVE ABNORMAL [None]
  - ELECTROCARDIOGRAM PR INTERVAL [None]
  - EXTRAPYRAMIDAL DISORDER [None]
  - HYPERREFLEXIA [None]
  - MANIA [None]
  - NEPHROGENIC DIABETES INSIPIDUS [None]
  - POLYURIA [None]
  - RENAL FAILURE ACUTE [None]
  - SINUS ARREST [None]
  - SPEECH DISORDER [None]
  - TREMOR [None]
